FAERS Safety Report 25621374 (Version 4)
Quarter: 2025Q3

REPORT INFORMATION
  Report Type: Spontaneous
  Country: US (occurrence: US)
  Receive Date: 20250730
  Receipt Date: 20250915
  Transmission Date: 20251021
  Serious: No
  Sender: MICRO LABS
  Company Number: US-862174955-ML2025-03635

PATIENT
  Age: 71 Year
  Sex: Female
  Weight: 106 kg

DRUGS (4)
  1. DORZOLAMIDE HYDROCHLORIDE AND TIMOLOL MALEATE OPHTHALMIC SOLUTION [Suspect]
     Active Substance: DORZOLAMIDE HYDROCHLORIDE\TIMOLOL MALEATE
     Indication: Glaucoma
     Dosage: FREQUENCY: TWICE A DAY ONLY IN ONE EYE?SHE ADDED THAT SHE WAS INITIALLY USING THE MEDICATION TWICE A
     Route: 047
     Dates: start: 2025, end: 20250716
  2. DORZOLAMIDE HYDROCHLORIDE AND TIMOLOL MALEATE OPHTHALMIC SOLUTION [Suspect]
     Active Substance: DORZOLAMIDE HYDROCHLORIDE\TIMOLOL MALEATE
     Indication: Ocular hyperaemia
  3. DORZOLAMIDE HYDROCHLORIDE AND TIMOLOL MALEATE OPHTHALMIC SOLUTION [Suspect]
     Active Substance: DORZOLAMIDE HYDROCHLORIDE\TIMOLOL MALEATE
     Indication: Post procedural haemorrhage
  4. Equate Dry Eye Relief Lubricate eye drops [Concomitant]
     Indication: Dry eye

REACTIONS (4)
  - Pain [Unknown]
  - Eye irritation [Recovered/Resolved]
  - Vision blurred [Recovered/Resolved]
  - Product quality issue [Unknown]

NARRATIVE: CASE EVENT DATE: 20250702
